FAERS Safety Report 24690730 (Version 1)
Quarter: 2024Q4

REPORT INFORMATION
  Report Type: Spontaneous
  Country: US (occurrence: US)
  Receive Date: 20241203
  Receipt Date: 20241203
  Transmission Date: 20250114
  Serious: Yes (Other)
  Sender: MYLAN
  Company Number: US-MYLANLABS-2024M1106225

PATIENT
  Sex: Female

DRUGS (7)
  1. PREDNISONE [Suspect]
     Active Substance: PREDNISONE
     Indication: Immune-complex membranoproliferative glomerulonephritis
     Dosage: 20 MILLIGRAM, QD
     Route: 065
  2. PREDNISONE [Suspect]
     Active Substance: PREDNISONE
     Dosage: UNK, DOSE TAPERED
     Route: 065
  3. PREDNISONE [Suspect]
     Active Substance: PREDNISONE
     Dosage: 5 MILLIGRAM
     Route: 065
  4. PREDNISONE [Suspect]
     Active Substance: PREDNISONE
     Dosage: 50 MILLIGRAM, QD (INCREASED TO 50 MG/DAY)
     Route: 065
  5. MYCOPHENOLATE MOFETIL [Suspect]
     Active Substance: MYCOPHENOLATE MOFETIL
     Indication: Immune-complex membranoproliferative glomerulonephritis
     Dosage: UNK
     Route: 065
  6. CORTICOTROPIN [Concomitant]
     Active Substance: CORTICOTROPIN
     Indication: Immune-complex membranoproliferative glomerulonephritis
     Dosage: UNK, REPOSITORY (DISCONTINUED)
     Route: 065
  7. CORTICOTROPIN [Concomitant]
     Active Substance: CORTICOTROPIN
     Dosage: UNK, AGAIN INITIATED
     Route: 065

REACTIONS (6)
  - Rebound effect [Unknown]
  - Immune-complex membranoproliferative glomerulonephritis [Unknown]
  - Disease recurrence [Unknown]
  - Suicidal ideation [Unknown]
  - Gastrointestinal disorder [Unknown]
  - Off label use [Unknown]
